FAERS Safety Report 4499224-7 (Version None)
Quarter: 2004Q4

REPORT INFORMATION
  Report Type: 
  Country: None (occurrence: None)
  Receive Date: 20041111
  Receipt Date: 20041102
  Transmission Date: 20050328
  Serious: Yes (Life-Threatening)
  Sender: FDA-Public Use
  Company Number: NA-GLAXOSMITHKLINE-B0350895A

PATIENT
  Age: 65 Year
  Sex: Female
  Weight: 68 kg

DRUGS (2)
  1. AROPAX [Suspect]
     Indication: DEPRESSION
     Route: 048
     Dates: start: 20040915, end: 20041006
  2. AVELON [Concomitant]
     Indication: WHITE BLOOD CELL COUNT INCREASED
     Route: 048
     Dates: start: 20040915, end: 20040920

REACTIONS (4)
  - POST-TRAUMATIC SYNDROME [None]
  - PSYCHOTIC DISORDER [None]
  - SUICIDAL IDEATION [None]
  - TREATMENT NONCOMPLIANCE [None]
